FAERS Safety Report 7137191-8 (Version None)
Quarter: 2010Q4

REPORT INFORMATION
  Report Type: 
  Country: None (occurrence: None)
  Receive Date: 20101206
  Receipt Date: 20070626
  Transmission Date: 20110411
  Serious: Yes (Death)
  Sender: FDA-Public Use
  Company Number: US-ACTELION-A-US2007-16925

PATIENT

DRUGS (10)
  1. ILOPROST INHALATION SOLUTION 5UG US [Suspect]
     Indication: PULMONARY ARTERIAL HYPERTENSION
     Dosage: 5 UG, 6-9 X DAY
     Route: 055
     Dates: start: 20061109, end: 20070623
  2. ZOCOR [Concomitant]
  3. LASIX [Concomitant]
  4. PREDNISONE [Concomitant]
  5. NORVASC [Concomitant]
  6. TRICOR [Concomitant]
  7. GLIMEPIRIDE [Concomitant]
  8. ZANTAC [Concomitant]
  9. LEVOXYL [Concomitant]
  10. POTASSIUM CHLORIDE [Concomitant]

REACTIONS (1)
  - DEATH [None]
